FAERS Safety Report 15379288 (Version 6)
Quarter: 2018Q4

REPORT INFORMATION
  Report Type: Other
  Country: US (occurrence: US)
  Receive Date: 20180913
  Receipt Date: 20181129
  Transmission Date: 20190204
  Serious: Yes (Death)
  Sender: FDA-Public Use
  Company Number: US-ACORDA-ACO_153799_2018

PATIENT
  Age: 65 Year
  Sex: Female

DRUGS (3)
  1. AMPYRA [Suspect]
     Active Substance: DALFAMPRIDINE
     Indication: MULTIPLE SCLEROSIS
     Dosage: 10 MG, BID
     Route: 048
     Dates: start: 2010, end: 201802
  2. TECFIDERA [Suspect]
     Active Substance: DIMETHYL FUMARATE
     Dosage: 240 MILLIGRAM, BID
     Route: 048
  3. TECFIDERA [Suspect]
     Active Substance: DIMETHYL FUMARATE
     Indication: MULTIPLE SCLEROSIS
     Dosage: 120 MILLIGRAM, BID
     Route: 048

REACTIONS (8)
  - Headache [Unknown]
  - Central nervous system lesion [Unknown]
  - Multiple sclerosis [Unknown]
  - Disease complication [Fatal]
  - Arrhythmia [Fatal]
  - Oedema peripheral [Fatal]
  - Pericardial effusion [Fatal]
  - Therapy cessation [Unknown]

NARRATIVE: CASE EVENT DATE: 201711
